FAERS Safety Report 6032116-0 (Version None)
Quarter: 2009Q1

REPORT INFORMATION
  Report Type: 
  Country: None (occurrence: None)
  Receive Date: 20090108
  Receipt Date: 20051214
  Transmission Date: 20090719
  Serious: Yes (Hospitalization, Other)
  Sender: FDA-Public Use
  Company Number: US-PFIZER INC-2008159871

PATIENT
  Sex: Female
  Weight: 73 kg

DRUGS (7)
  1. CELECOXIB [Suspect]
     Indication: COLONIC POLYP
     Dosage: 400 MG, 2X/DAY
     Route: 048
     Dates: start: 20000714, end: 20020212
  2. VITAMIN E [Concomitant]
     Dosage: UNK
  3. PSYLLIUM [Concomitant]
     Dosage: UNK
  4. LANOXIN [Concomitant]
     Dosage: UNK
  5. CUMADIN [Concomitant]
     Dosage: UNK
     Dates: start: 20001214, end: 20020212
  6. MULTI-VITAMINS [Concomitant]
     Dosage: UNK
  7. CALCIUM [Concomitant]
     Dosage: UNK

REACTIONS (9)
  - CHEST PAIN [None]
  - EOSINOPHIL COUNT INCREASED [None]
  - HYPOTENSION [None]
  - INTERSTITIAL LUNG DISEASE [None]
  - LUNG INFILTRATION [None]
  - ORTHOSTATIC HYPOTENSION [None]
  - PNEUMONIA [None]
  - PULMONARY OEDEMA [None]
  - RED BLOOD CELL SEDIMENTATION RATE INCREASED [None]
